FAERS Safety Report 5917284-0 (Version None)
Quarter: 2008Q4

REPORT INFORMATION
  Report Type: 
  Country: None (occurrence: None)
  Receive Date: 20081014
  Receipt Date: 20080930
  Transmission Date: 20090506
  Serious: Yes (Hospitalization)
  Sender: FDA-Public Use
  Company Number: US-ELI_LILLY_AND_COMPANY-US200808000174

PATIENT
  Age: 84 Year
  Sex: Female

DRUGS (2)
  1. FORTEO [Suspect]
     Dates: start: 20060726
  2. FORTEO [Suspect]
     Dosage: UNK, UNK

REACTIONS (4)
  - CONTUSION [None]
  - FOOT FRACTURE [None]
  - JOINT INJURY [None]
  - ROAD TRAFFIC ACCIDENT [None]
